FAERS Safety Report 4279925-6 (Version None)
Quarter: 2004Q1

REPORT INFORMATION
  Report Type: 
  Country: None (occurrence: None)
  Receive Date: 20040126
  Receipt Date: 20040112
  Transmission Date: 20041129
  Serious: No
  Sender: FDA-Public Use
  Company Number: 2004AP00128

PATIENT
  Age: 7 Year
  Sex: Male

DRUGS (4)
  1. PROPOFOL [Suspect]
     Indication: ANAESTHESIA
     Dosage: 120 MG; IV
     Route: 042
  2. FENTANYL [Suspect]
     Indication: ANAESTHESIA
     Dosage: 0.1 MG; IV
     Route: 042
  3. SUXAMETHONIUM [Suspect]
     Indication: ANAESTHESIA
     Dosage: 30 MG; IV
     Route: 042
  4. MIDAZOLAM HCL [Concomitant]

REACTIONS (12)
  - BLOOD GLUCOSE INCREASED [None]
  - BLOOD LACTIC ACID INCREASED [None]
  - BLOOD POTASSIUM INCREASED [None]
  - BLOOD PRESSURE DIASTOLIC DECREASED [None]
  - C-REACTIVE PROTEIN INCREASED [None]
  - DELAYED RECOVERY FROM ANAESTHESIA [None]
  - HEART RATE INCREASED [None]
  - LACTIC ACIDOSIS [None]
  - LIPID METABOLISM DISORDER [None]
  - RESPIRATORY DISTRESS [None]
  - TACHYPNOEA [None]
  - WHEEZING [None]
